FAERS Safety Report 21109105 (Version 3)
Quarter: 2023Q1

REPORT INFORMATION
  Report Type: Spontaneous
  Country: ES (occurrence: None)
  Receive Date: 20220721
  Receipt Date: 20230215
  Transmission Date: 20230417
  Serious: Yes (Other)
  Sender: FDA-Public Use
  Company Number: ES-ROCHE-3033727

PATIENT
  Sex: Female

DRUGS (1)
  1. RITUXIMAB [Suspect]
     Active Substance: RITUXIMAB
     Indication: Primary progressive multiple sclerosis
     Route: 065

REACTIONS (13)
  - Ileus paralytic [Unknown]
  - Drug intolerance [Unknown]
  - Burning sensation [Unknown]
  - Drug hypersensitivity [Unknown]
  - Palpitations [Unknown]
  - Chills [Unknown]
  - Headache [Unknown]
  - Eye pain [Unknown]
  - Genital ulceration [Unknown]
  - Bowel movement irregularity [Unknown]
  - Off label use [Unknown]
  - Skin ulcer [Unknown]
  - Stomatitis [Unknown]
